FAERS Safety Report 20101158 (Version 1)
Quarter: 2021Q4

REPORT INFORMATION
  Report Type: Spontaneous
  Country: US (occurrence: None)
  Receive Date: 20211122
  Receipt Date: 20211122
  Transmission Date: 20220303
  Serious: Yes (Hospitalization)
  Sender: FDA-Public Use
  Company Number: None

PATIENT
  Age: 55 Year
  Sex: Male
  Weight: 90.9 kg

DRUGS (2)
  1. BAMLANIVIMAB [Suspect]
     Active Substance: BAMLANIVIMAB
     Indication: COVID-19
     Dosage: OTHER FREQUENCY : ONCE;?
     Route: 041
  2. ETESEVIMAB [Suspect]
     Active Substance: ETESEVIMAB
     Indication: COVID-19
     Dosage: OTHER FREQUENCY : ONCE;?
     Route: 041

REACTIONS (11)
  - Chest pain [None]
  - Chest discomfort [None]
  - Chest discomfort [None]
  - Dyspnoea [None]
  - Dizziness [None]
  - Chest pain [None]
  - Pallor [None]
  - Hyperhidrosis [None]
  - Blood pressure systolic decreased [None]
  - Blood pressure diastolic decreased [None]
  - Infusion related reaction [None]

NARRATIVE: CASE EVENT DATE: 20211119
